FAERS Safety Report 8779477 (Version 2)
Quarter: 2012Q4

REPORT INFORMATION
  Report Type: 
  Country: US (occurrence: US)
  Receive Date: 20120912
  Receipt Date: 20120917
  Transmission Date: 20130627
  Serious: Yes (Other)
  Sender: FDA-Public Use
  Company Number: US-BAYER-2012-094277

PATIENT
  Age: 39 Year
  Sex: Female
  Weight: 98 kg

DRUGS (6)
  1. BETASERON [Suspect]
     Indication: MULTIPLE SCLEROSIS
     Dosage: 2 miu, QOD
     Route: 058
     Dates: start: 20120831
  2. PROZAC [Concomitant]
  3. ALEVE GELCAP [Concomitant]
  4. CENTRUM [Concomitant]
  5. VITAMIN E [Concomitant]
  6. VITAMIN C [Concomitant]

REACTIONS (7)
  - Syncope [Not Recovered/Not Resolved]
  - Injection site erythema [Not Recovered/Not Resolved]
  - Injection site swelling [Not Recovered/Not Resolved]
  - Asthenia [None]
  - Influenza like illness [Not Recovered/Not Resolved]
  - Dizziness [Not Recovered/Not Resolved]
  - Nausea [Not Recovered/Not Resolved]
